FAERS Safety Report 9941882 (Version 1)
Quarter: 2014Q1

REPORT INFORMATION
  Report Type: Report from Study
  Country: US (occurrence: US)
  Receive Date: 20140303
  Receipt Date: 20140303
  Transmission Date: 20141002
  Serious: No
  Sender: FDA-Public Use
  Company Number: US-ABBVIE-13P-163-1043598-00

PATIENT
  Age: 19 Year
  Sex: Male

DRUGS (3)
  1. HUMIRA [Suspect]
     Indication: CROHN^S DISEASE
  2. OMEPRAZOLE [Concomitant]
     Indication: DYSPEPSIA
  3. OMEPRAZOLE [Concomitant]
     Indication: DYSPEPSIA

REACTIONS (2)
  - Incorrect product storage [Unknown]
  - Drug dose omission [Unknown]
